FAERS Safety Report 4788351-2 (Version None)
Quarter: 2005Q4

REPORT INFORMATION
  Report Type: 
  Country: None (occurrence: None)
  Receive Date: 20051005
  Receipt Date: 20050927
  Transmission Date: 20060501
  Serious: Yes (Hospitalization)
  Sender: FDA-Public Use
  Company Number: JP-SP-2005-01915

PATIENT
  Age: 78 Year
  Sex: Male

DRUGS (1)
  1. IMMUCYST [Suspect]
     Indication: MALIGNANT NEOPLASM OF RENAL PELVIS
     Route: 043
     Dates: start: 20050701, end: 20050901

REACTIONS (1)
  - HYPERTONIC BLADDER [None]
